FAERS Safety Report 8145024-6 (Version None)
Quarter: 2012Q1

REPORT INFORMATION
  Report Type: 
  Country: None (occurrence: None)
  Receive Date: 20120217
  Receipt Date: 20120208
  Transmission Date: 20120608
  Serious: Yes (Other)
  Sender: FDA-Public Use
  Company Number: PHHY2012KR002424

PATIENT
  Sex: Female

DRUGS (2)
  1. EXJADE [Suspect]
     Indication: IRON OVERLOAD
     Dosage: 1500 MG, PER DAY
     Route: 048
     Dates: start: 20100428
  2. EXJADE [Suspect]
     Dosage: 2000 MG, PER DAY
     Route: 048

REACTIONS (4)
  - DRY MOUTH [None]
  - GENERAL PHYSICAL CONDITION ABNORMAL [None]
  - EAR DISORDER [None]
  - INTENTIONAL DRUG MISUSE [None]
